FAERS Safety Report 12705017 (Version 1)
Quarter: 2016Q3

REPORT INFORMATION
  Report Type: Spontaneous
  Country: US (occurrence: None)
  Receive Date: 20160831
  Receipt Date: 20160831
  Transmission Date: 20161109
  Serious: No
  Sender: FDA-Public Use
  Company Number: None

PATIENT
  Age: 27 Year
  Sex: Male
  Weight: 73.94 kg

DRUGS (1)
  1. MESNA. [Suspect]
     Active Substance: MESNA
     Indication: TESTIS CANCER
     Dosage: 2200 MG DAYS 1-5 Q 28 DAYS INTRAVENOUS DRIP
     Route: 041
     Dates: start: 20160629, end: 20160819

REACTIONS (3)
  - Dyspnoea [None]
  - Throat tightness [None]
  - Dizziness [None]

NARRATIVE: CASE EVENT DATE: 20160819
